FAERS Safety Report 14236992 (Version 1)
Quarter: 2017Q4

REPORT INFORMATION
  Report Type: Spontaneous
  Country: US (occurrence: US)
  Receive Date: 20171129
  Receipt Date: 20171129
  Transmission Date: 20180321
  Serious: Yes (Other)
  Sender: FDA-Public Use
  Company Number: US-TEVA-2017-US-826957

PATIENT
  Age: 62 Year
  Sex: Female

DRUGS (1)
  1. COPAXONE [Suspect]
     Active Substance: GLATIRAMER ACETATE
     Indication: MULTIPLE SCLEROSIS
     Route: 058
     Dates: start: 20160912, end: 20171001

REACTIONS (7)
  - Impaired work ability [Unknown]
  - Disturbance in attention [Unknown]
  - Multiple sclerosis [Unknown]
  - Gait disturbance [Unknown]
  - Vascular dementia [Unknown]
  - Cognitive disorder [Unknown]
  - Bradyphrenia [Unknown]

NARRATIVE: CASE EVENT DATE: 201709
